FAERS Safety Report 5653768-0 (Version None)
Quarter: 2008Q1

REPORT INFORMATION
  Report Type: 
  Country: None (occurrence: None)
  Receive Date: 20080131
  Receipt Date: 20071010
  Transmission Date: 20080703
  Serious: No
  Sender: FDA-Public Use
  Company Number: US200710002971

PATIENT
  Age: 70 Year
  Sex: Male
  Weight: 94.3 kg

DRUGS (2)
  1. BYETTA [Suspect]
     Indication: TYPE 2 DIABETES MELLITUS
     Dosage: 5 UG, 2/D, SUBCUTANEOUS ; 10 UG, 2/D, SUBCUTANEOUS
     Route: 058
     Dates: start: 20070201, end: 20070301
  2. BYETTA [Suspect]
     Indication: TYPE 2 DIABETES MELLITUS
     Dosage: 5 UG, 2/D, SUBCUTANEOUS ; 10 UG, 2/D, SUBCUTANEOUS
     Route: 058
     Dates: start: 20070301

REACTIONS (6)
  - ABDOMINAL DISTENSION [None]
  - CONSTIPATION [None]
  - FAECES HARD [None]
  - NAUSEA [None]
  - RETCHING [None]
  - WEIGHT DECREASED [None]
